FAERS Safety Report 9827473 (Version 2)
Quarter: 2014Q1

REPORT INFORMATION
  Report Type: Report from Study
  Country: JP (occurrence: JP)
  Receive Date: 20140117
  Receipt Date: 20140207
  Transmission Date: 20141002
  Serious: Yes (Hospitalization)
  Sender: FDA-Public Use
  Company Number: JP-009507513-1401JPN004494

PATIENT
  Age: 72 Year
  Sex: Female
  Weight: 57 kg

DRUGS (20)
  1. PEGINTRON [Suspect]
     Indication: CHRONIC HEPATITIS C
     Dosage: 1.5 MICROGRAM PER KILOGRAM, QW
     Route: 058
     Dates: start: 20120910, end: 20121029
  2. PEGINTRON [Suspect]
     Dosage: 1.0 MICROGRAM PER KILOGRAM, QW
     Route: 058
     Dates: start: 20121105, end: 20121203
  3. REBETOL [Suspect]
     Indication: CHRONIC HEPATITIS C
     Dosage: 600 MG, QD
     Route: 048
     Dates: start: 20120910, end: 20121121
  4. REBETOL [Suspect]
     Dosage: 200 MG, BID
     Route: 048
     Dates: start: 20121122, end: 20121211
  5. TELAVIC [Suspect]
     Indication: CHRONIC HEPATITIS C
     Dosage: 1500 MG
     Route: 048
     Dates: start: 20120910, end: 20121202
  6. PREDONINE [Suspect]
     Indication: PROPHYLAXIS
     Dosage: 20 MG
     Route: 048
     Dates: start: 20120910, end: 20120930
  7. PREDONINE [Suspect]
     Dosage: 15 MG
     Route: 048
     Dates: start: 20121001, end: 20121014
  8. PREDONINE [Suspect]
     Dosage: 10 MG
     Route: 048
     Dates: start: 20121015, end: 20121106
  9. PREDONINE [Suspect]
     Dosage: 5 MG
     Dates: start: 20121107, end: 20121204
  10. PREDONINE [Suspect]
     Dosage: 2 MG
     Route: 048
     Dates: start: 20121205, end: 20121211
  11. GASTER D [Concomitant]
     Indication: PROPHYLAXIS
     Dosage: 40 MG
     Route: 048
     Dates: start: 20120910, end: 20121211
  12. ALLEGRA [Concomitant]
     Indication: PROPHYLAXIS
     Dosage: 120 MG
     Route: 048
     Dates: start: 20120910, end: 20121211
  13. CALONAL [Concomitant]
     Indication: PROPHYLAXIS
     Dosage: 600 MG, FORMULATION POR
     Route: 048
     Dates: start: 20120910, end: 20121127
  14. DOGMATYL [Concomitant]
     Indication: PROPHYLAXIS
     Dosage: 100 MG, FORMULATION POR
     Route: 048
     Dates: start: 20120910, end: 20121021
  15. DOGMATYL [Concomitant]
     Dosage: 150 MG, FORMULATION POR
     Route: 048
     Dates: start: 20121022, end: 20121230
  16. DOGMATYL [Concomitant]
     Dosage: 100 MG, FORMULATION POR
     Route: 048
     Dates: start: 20121231
  17. FORSENID [Concomitant]
     Indication: CONSTIPATION
     Dosage: 36 MG
     Route: 048
     Dates: start: 20120911
  18. MAGMITT [Concomitant]
     Indication: CONSTIPATION
     Dosage: 330 MG, FORMULATION POR
     Route: 048
     Dates: start: 20120911
  19. PAXIL [Concomitant]
     Indication: DEPRESSIVE SYMPTOM
     Dosage: 10 MG, FORMULATION POR
     Route: 048
     Dates: start: 20120914, end: 20121126
  20. PAXIL [Concomitant]
     Dosage: 20 MG FORMULATION POR
     Route: 048
     Dates: start: 20121127

REACTIONS (4)
  - Depression [Recovered/Resolved]
  - Constipation [Not Recovered/Not Resolved]
  - Hyperuricaemia [Recovered/Resolved]
  - Haemoglobin decreased [Recovered/Resolved]
